FAERS Safety Report 11679041 (Version 2)
Quarter: 2016Q1

REPORT INFORMATION
  Report Type: Report from Study
  Country: JP (occurrence: JP)
  Receive Date: 20151028
  Receipt Date: 20160304
  Transmission Date: 20160525
  Serious: Yes (Other)
  Sender: FDA-Public Use
  Company Number: JP-AMGEN-JPNSP2015113423

PATIENT
  Age: 81 Year
  Sex: Male
  Weight: 68 kg

DRUGS (13)
  1. AM                                 /07400301/ [Concomitant]
     Dosage: 2 DF, QD
     Route: 048
     Dates: start: 20130924
  2. XTANDI [Concomitant]
     Active Substance: ENZALUTAMIDE
     Dosage: UNK
     Route: 065
     Dates: start: 20140801
  3. MAGLAX [Concomitant]
     Active Substance: MAGNESIUM OXIDE
     Dosage: 2 DF, TID
     Route: 048
     Dates: start: 20140326, end: 20140703
  4. DENOSUMAB [Suspect]
     Active Substance: DENOSUMAB
     Indication: METASTASES TO BONE
     Dosage: 120 MG, UNK
     Route: 058
     Dates: start: 20120831
  5. STAYBLA [Concomitant]
     Active Substance: IMIDAFENACIN
     Dosage: 2 MG, QD
     Route: 048
     Dates: start: 20131119
  6. FAMOTIDINE. [Concomitant]
     Active Substance: FAMOTIDINE
     Dosage: 2 DF, QD
     Route: 048
     Dates: start: 20130924, end: 20131022
  7. DENOTAS [Concomitant]
     Active Substance: CALCIUM CARBONATE\CHOLECALCIFEROL\MAGNESIUM CARBONATE
     Dosage: 2 DF, QD
     Route: 048
     Dates: start: 20140704
  8. ZOLADEX [Concomitant]
     Active Substance: GOSERELIN ACETATE
     Dosage: UNK
     Route: 065
     Dates: start: 20091218
  9. KENALOG [Concomitant]
     Active Substance: TRIAMCINOLONE ACETONIDE
     Dosage: 1 DF, QD
     Route: 050
     Dates: start: 20131119, end: 20131216
  10. SENNOSIDE                          /00571901/ [Concomitant]
     Active Substance: SENNOSIDES A AND B
     Dosage: 2 DF, QD
     Route: 048
     Dates: start: 20140326
  11. DEXAMETHASONE. [Concomitant]
     Active Substance: DEXAMETHASONE
     Dosage: UNK
     Route: 065
     Dates: start: 20130924
  12. MOHRUS [Concomitant]
     Active Substance: KETOPROFEN
     Dosage: 10 DF, QD
     Route: 050
     Dates: start: 20131022
  13. TAXOTERE [Concomitant]
     Active Substance: DOCETAXEL
     Dosage: UNK
     Route: 065
     Dates: start: 20130924

REACTIONS (2)
  - Osteomyelitis [Not Recovered/Not Resolved]
  - Osteonecrosis of jaw [Not Recovered/Not Resolved]

NARRATIVE: CASE EVENT DATE: 20141014
